FAERS Safety Report 8124729-7 (Version None)
Quarter: 2012Q1

REPORT INFORMATION
  Report Type: 
  Country: None (occurrence: None)
  Receive Date: 20120209
  Receipt Date: 20120131
  Transmission Date: 20120608
  Serious: Yes (Other)
  Sender: FDA-Public Use
  Company Number: CA-JNJFOC-20120201830

PATIENT
  Sex: Male
  Weight: 56.9 kg

DRUGS (2)
  1. METHADONE HCL [Concomitant]
     Dosage: DAILY
     Route: 065
  2. REMICADE [Suspect]
     Indication: CROHN'S DISEASE
     Route: 042

REACTIONS (1)
  - TOOTH EXTRACTION [None]
